FAERS Safety Report 13026752 (Version 1)
Quarter: 2016Q4

REPORT INFORMATION
  Report Type: Spontaneous
  Country: US (occurrence: US)
  Receive Date: 20161214
  Receipt Date: 20161214
  Transmission Date: 20170207
  Serious: Yes (Hospitalization)
  Sender: FDA-Public Use
  Company Number: US-WEST-WARD PHARMACEUTICALS CORP.-US-H14001-16-02735

PATIENT
  Age: 38 Year
  Sex: Male

DRUGS (4)
  1. MECLIZINE [Concomitant]
     Active Substance: MECLIZINE HYDROCHLORIDE
     Indication: IMPAIRED GASTRIC EMPTYING
     Route: 065
  2. OXYCODONE [Suspect]
     Active Substance: OXYCODONE
     Indication: IMPAIRED GASTRIC EMPTYING
     Route: 065
  3. ALPRAZOLAM. [Concomitant]
     Active Substance: ALPRAZOLAM
     Indication: IMPAIRED GASTRIC EMPTYING
     Route: 065
  4. FENTANYL. [Suspect]
     Active Substance: FENTANYL
     Indication: IMPAIRED GASTRIC EMPTYING
     Route: 065

REACTIONS (2)
  - Narcotic bowel syndrome [Unknown]
  - Tachyphylaxis [Unknown]
